FAERS Safety Report 10401905 (Version 3)
Quarter: 2014Q3

REPORT INFORMATION
  Report Type: Spontaneous
  Country: US (occurrence: None)
  Receive Date: 20140814
  Receipt Date: 20140904
  Transmission Date: 20150326
  Serious: Yes (Other)
  Sender: FDA-Public Use
  Company Number: ADR-2014-01386

PATIENT
  Age: 23 Year
  Sex: Female

DRUGS (2)
  1. BACLOFEN ORAL [Suspect]
     Active Substance: BACLOFEN
     Dosage: PRN
  2. LIORESAL [Suspect]
     Active Substance: BACLOFEN
     Indication: MUSCLE SPASTICITY

REACTIONS (7)
  - Arachnoiditis [None]
  - Muscle spasticity [None]
  - Device occlusion [None]
  - Musculoskeletal stiffness [None]
  - Device battery issue [None]
  - Drug effect decreased [None]
  - Condition aggravated [None]
